FAERS Safety Report 19479743 (Version 1)
Quarter: 2021Q2

REPORT INFORMATION
  Report Type: Spontaneous
  Country: NL (occurrence: NL)
  Receive Date: 20210630
  Receipt Date: 20210630
  Transmission Date: 20210717
  Serious: Yes (Life-Threatening, Hospitalization, Other)
  Sender: FDA-Public Use
  Company Number: NL-TEVA-2021-NL-1925980

PATIENT
  Age: 87 Year
  Sex: Female
  Weight: 65 kg

DRUGS (6)
  1. AMIODARON TABLET 200MG / BRAND NAME NOT SPECIFIED [Suspect]
     Active Substance: AMIODARONE
     Indication: PRODUCT USED FOR UNKNOWN INDICATION
     Dosage: 1X A DAY, NOW STOPPED AFTER HOSPITAL ADMISSION FOR THROMBOTIC THROMBOCYTOPENIA PURPURA
     Dates: start: 2020, end: 20210412
  2. PANTOPRAZOL TABLET MSR 20MG / MAAGZUURTABLET PANTOPRAZOL HTP TABLET MS [Concomitant]
     Dosage: THERAPY START DATE ASKU, THERAPY END DATE ASKU, 20 MG
  3. RIVAROXABAN TABLET 10MG / XARELTO TABLET FILMOMHULD 10MG [Concomitant]
     Dosage: 10 MG,THERAPY START DATE ASKU, THERAPY END DATE ASKU
  4. AMLODIPINE/VALSARTAN TABLET 10/160MG / BRAND NAME NOT SPECIFIED [Concomitant]
     Dosage: THERAPY START DATE ASKU, THERAPY END DATE ASKU, 10/160 MG
  5. SOTALOL TABLET 160MG / BRAND NAME NOT SPECIFIED [Concomitant]
     Dosage: THERAPY START DATE ASKU, THERAPY END DATE ASKU
  6. ATORVASTATINE KAUWTABLET 20MG / BRAND NAME NOT SPECIFIED [Concomitant]
     Dosage: THERAPY START DATE ASKU, THERAPY END DATE ASKU, 20 MG

REACTIONS (5)
  - Asthenia [Recovering/Resolving]
  - Haemolytic anaemia [Recovering/Resolving]
  - Dyspnoea [Recovering/Resolving]
  - Thrombotic thrombocytopenic purpura [Recovering/Resolving]
  - Melaena [Recovering/Resolving]
